FAERS Safety Report 6950854-X (Version None)
Quarter: 2010Q3

REPORT INFORMATION
  Report Type: 
  Country: None (occurrence: None)
  Receive Date: 20100828
  Receipt Date: 20100225
  Transmission Date: 20110219
  Serious: No
  Sender: FDA-Public Use
  Company Number: US-ABBOTT-10P-163-0629731-00

PATIENT
  Sex: Male
  Weight: 108.05 kg

DRUGS (2)
  1. NIASPAN [Suspect]
     Indication: HIGH DENSITY LIPOPROTEIN DECREASED
     Dates: start: 20100201
  2. FLOMAX [Concomitant]
     Indication: PROSTATOMEGALY

REACTIONS (5)
  - BURNING SENSATION [None]
  - FACIAL SPASM [None]
  - FLUSHING [None]
  - LIP SWELLING [None]
  - PARAESTHESIA [None]
